FAERS Safety Report 25780091 (Version 1)
Quarter: 2025Q3

REPORT INFORMATION
  Report Type: Spontaneous
  Country: US (occurrence: US)
  Receive Date: 20250909
  Receipt Date: 20250909
  Transmission Date: 20251021
  Serious: No
  Sender: PFIZER
  Company Number: US-PFIZER INC-202500176013

PATIENT
  Age: 73 Year
  Sex: Female

DRUGS (1)
  1. LEVOXYL [Suspect]
     Active Substance: LEVOTHYROXINE SODIUM
     Indication: Hypothyroidism
     Dosage: 50 UG, DAILY (TAKES 1 AND HALF TABLET EVERY MORNING)

REACTIONS (5)
  - Malaise [Unknown]
  - Insomnia [Unknown]
  - Ophthalmic migraine [Unknown]
  - Disease recurrence [Unknown]
  - Depressed mood [Unknown]
